FAERS Safety Report 8887346 (Version 1)
Quarter: 2012Q4

REPORT INFORMATION
  Report Type: 
  Country: US (occurrence: US)
  Receive Date: 20121101
  Receipt Date: 20121101
  Transmission Date: 20130627
  Serious: Yes (Other)
  Sender: FDA-Public Use
  Company Number: US-PFIZER INC-2012272111

PATIENT
  Age: 61 Year
  Sex: Female
  Weight: 83.9 kg

DRUGS (4)
  1. CELEBREX [Suspect]
     Indication: KNEE ARTHRITIS
     Dosage: 200 mg, 2x/day
     Route: 048
  2. CELEBREX [Suspect]
     Dosage: 200 mg, 2x/day
     Route: 048
     Dates: start: 201209, end: 201209
  3. CELEBREX [Suspect]
     Dosage: 200 mg, 1x/day
     Route: 048
     Dates: start: 201209, end: 201210
  4. TENORMIN [Concomitant]
     Indication: BLOOD PRESSURE HIGH
     Dosage: 50 mg, 1x/day

REACTIONS (3)
  - Arthropathy [Unknown]
  - Drug ineffective [Not Recovered/Not Resolved]
  - Arthralgia [Not Recovered/Not Resolved]
